FAERS Safety Report 18356943 (Version 2)
Quarter: 2020Q4

REPORT INFORMATION
  Report Type: Report from Study
  Country: CA (occurrence: CA)
  Receive Date: 20201007
  Receipt Date: 20201015
  Transmission Date: 20210114
  Serious: No
  Sender: FDA-Public Use
  Company Number: CA-JNJFOC-20200952022

PATIENT
  Age: 16 Year
  Sex: Female
  Weight: 66.1 kg

DRUGS (1)
  1. INFLIXIMAB, RECOMBINANT [Suspect]
     Active Substance: INFLIXIMAB
     Indication: INFLAMMATORY BOWEL DISEASE
     Route: 042
     Dates: start: 20160427

REACTIONS (1)
  - SAPHO syndrome [Unknown]

NARRATIVE: CASE EVENT DATE: 20200928
